FAERS Safety Report 22206303 (Version 3)
Quarter: 2023Q2

REPORT INFORMATION
  Report Type: Spontaneous
  Country: US (occurrence: None)
  Receive Date: 20230413
  Receipt Date: 20230517
  Transmission Date: 20230722
  Serious: Yes (Other)
  Sender: FDA-Public Use
  Company Number: US-ROCHE-3316939

PATIENT
  Sex: Male

DRUGS (3)
  1. VABYSMO [Suspect]
     Active Substance: FARICIMAB-SVOA
     Indication: Product used for unknown indication
     Route: 065
  2. AVASTIN [Suspect]
     Active Substance: BEVACIZUMAB
     Indication: Product used for unknown indication
     Route: 065
  3. PREDNISONE [Concomitant]
     Active Substance: PREDNISONE
     Dosage: HALF MG/KG/DAY
     Route: 048

REACTIONS (8)
  - Vasculitis [Not Recovered/Not Resolved]
  - Eye inflammation [Recovered/Resolved]
  - Corneal oedema [Unknown]
  - Visual impairment [Unknown]
  - Intraocular pressure increased [Unknown]
  - Optic disc haemorrhage [Unknown]
  - Eye inflammation [Unknown]
  - Off label use [Unknown]
